FAERS Safety Report 7375328-6 (Version None)
Quarter: 2011Q1

REPORT INFORMATION
  Report Type: 
  Country: None (occurrence: None)
  Receive Date: 20110325
  Receipt Date: 20110311
  Transmission Date: 20110831
  Serious: Yes (Hospitalization)
  Sender: FDA-Public Use
  Company Number: US-BAYER-201023196NA

PATIENT
  Sex: Female
  Weight: 57 kg

DRUGS (6)
  1. ASACOL [Concomitant]
     Indication: COLITIS
  2. METOCLOPRAMIDE [Concomitant]
  3. YAZ [Suspect]
     Indication: PREMENSTRUAL SYNDROME
     Dosage: UNK UNK, UNK
     Route: 048
     Dates: start: 20070301, end: 20090201
  4. OXYCODONE [Concomitant]
  5. YAZ [Suspect]
     Indication: CONTRACEPTION
  6. NADOLOL [Concomitant]
     Indication: MIGRAINE PROPHYLAXIS

REACTIONS (1)
  - PULMONARY EMBOLISM [None]
